FAERS Safety Report 7679484-1 (Version None)
Quarter: 2011Q3

REPORT INFORMATION
  Report Type: 
  Country: None (occurrence: None)
  Receive Date: 20110812
  Receipt Date: 20110812
  Transmission Date: 20111222
  Serious: Yes (Other)
  Sender: FDA-Public Use
  Company Number: None

PATIENT
  Sex: Female
  Weight: 61.234 kg

DRUGS (1)
  1. CIPROFLOXACIN HCL [Suspect]
     Indication: URINARY TRACT INFECTION
     Dosage: 500MG TABLET
     Route: 048
     Dates: start: 20110809, end: 20110810

REACTIONS (5)
  - NAUSEA [None]
  - DIARRHOEA [None]
  - PARAESTHESIA [None]
  - VOMITING [None]
  - HYPOAESTHESIA [None]
